FAERS Safety Report 4649326-7 (Version None)
Quarter: 2005Q2

REPORT INFORMATION
  Report Type: 
  Country: None (occurrence: None)
  Receive Date: 20050429
  Receipt Date: 20050316
  Transmission Date: 20051028
  Serious: Yes (Hospitalization)
  Sender: FDA-Public Use
  Company Number: US-MERCK-0503USA02815

PATIENT
  Age: 60 Year
  Sex: Female
  Weight: 137 kg

DRUGS (9)
  1. VYTORIN [Suspect]
     Indication: BLOOD CHOLESTEROL INCREASED
     Route: 048
     Dates: start: 20041201
  2. VYTORIN [Suspect]
     Route: 048
     Dates: start: 20050210, end: 20050215
  3. VYTORIN [Suspect]
     Indication: HYPERLIPIDAEMIA
     Route: 048
     Dates: start: 20041201
  4. VYTORIN [Suspect]
     Route: 048
     Dates: start: 20050210, end: 20050215
  5. GLUCOPHAGE [Concomitant]
     Route: 048
  6. COZAAR [Concomitant]
     Route: 048
  7. HYDRODIURIL [Concomitant]
     Route: 048
  8. LOPID [Concomitant]
     Route: 048
  9. PRINIVIL [Concomitant]
     Route: 048

REACTIONS (6)
  - CHEST PAIN [None]
  - INSOMNIA [None]
  - PALPITATIONS [None]
  - SUPRAVENTRICULAR EXTRASYSTOLES [None]
  - TACHYCARDIA [None]
  - VENTRICULAR EXTRASYSTOLES [None]
